FAERS Safety Report 7058768-4 (Version None)
Quarter: 2010Q4

REPORT INFORMATION
  Report Type: 
  Country: None (occurrence: None)
  Receive Date: 20101022
  Receipt Date: 20101015
  Transmission Date: 20110411
  Serious: Yes (Hospitalization)
  Sender: FDA-Public Use
  Company Number: BE-ABBOTT-10P-013-0678570-00

PATIENT
  Sex: Female

DRUGS (5)
  1. HUMIRA [Suspect]
     Indication: CROHN'S DISEASE
     Dates: end: 20100929
  2. DOLZAM [Concomitant]
     Indication: PRODUCT USED FOR UNKNOWN INDICATION
  3. GAMBARAN [Concomitant]
     Indication: PRODUCT USED FOR UNKNOWN INDICATION
  4. PANTOMED [Concomitant]
     Indication: PRODUCT USED FOR UNKNOWN INDICATION
  5. PROZAC [Concomitant]
     Indication: PRODUCT USED FOR UNKNOWN INDICATION

REACTIONS (4)
  - ARTHRITIS [None]
  - BURSITIS [None]
  - JOINT SWELLING [None]
  - OEDEMA PERIPHERAL [None]
